FAERS Safety Report 5568074-2 (Version None)
Quarter: 2007Q4

REPORT INFORMATION
  Report Type: 
  Country: None (occurrence: None)
  Receive Date: 20071130
  Receipt Date: 20070917
  Transmission Date: 20080405
  Serious: No
  Sender: FDA-Public Use
  Company Number: US200708006713

PATIENT
  Age: 53 Year
  Sex: Female
  Weight: 117.9 kg

DRUGS (6)
  1. BYETTA [Suspect]
     Indication: TYPE 2 DIABETES MELLITUS
     Dosage: 5 UG, 2/D, SUBCUTANEOUS, 10 UG, 2/D, SUBCUTANEOUS, 5 UG, OTHER, SUBCUTANEOUS
     Route: 058
     Dates: start: 20070625, end: 20070824
  2. BYETTA [Suspect]
     Indication: TYPE 2 DIABETES MELLITUS
     Dosage: 5 UG, 2/D, SUBCUTANEOUS, 10 UG, 2/D, SUBCUTANEOUS, 5 UG, OTHER, SUBCUTANEOUS
     Route: 058
     Dates: start: 20070825, end: 20070828
  3. BYETTA [Suspect]
     Indication: TYPE 2 DIABETES MELLITUS
     Dosage: 5 UG, 2/D, SUBCUTANEOUS, 10 UG, 2/D, SUBCUTANEOUS, 5 UG, OTHER, SUBCUTANEOUS
     Route: 058
     Dates: start: 20070829, end: 20070829
  4. EXENATIDE 5MCG PEN, DISPOSABLE DEVICE (EXENATIDE PEN) (5MCG)) PEN,DISP [Concomitant]
  5. EXENATIDE 10MCG PEN, DISPOSABLE DEVICE (EXENATIDE PEN (10MCG)) PEN, DI [Concomitant]
  6. GLYBURIDE [Concomitant]

REACTIONS (5)
  - EARLY SATIETY [None]
  - HYPERHIDROSIS [None]
  - NAUSEA [None]
  - VOMITING [None]
  - WEIGHT DECREASED [None]
